FAERS Safety Report 22890284 (Version 3)
Quarter: 2023Q4

REPORT INFORMATION
  Report Type: Spontaneous
  Country: BR (occurrence: BR)
  Receive Date: 20230831
  Receipt Date: 20231102
  Transmission Date: 20240109
  Serious: Yes (Other)
  Sender: FDA-Public Use
  Company Number: BR-SA-SAC20230830000536

PATIENT
  Age: 6 Year
  Sex: Male
  Weight: 17.8 kg

DRUGS (12)
  1. SABRIL [Suspect]
     Active Substance: VIGABATRIN
     Indication: Infantile spasms
     Dosage: 6 DF, QD
     Route: 065
     Dates: start: 2018
  2. SABRIL [Suspect]
     Active Substance: VIGABATRIN
     Indication: Arnold-Chiari malformation
     Route: 065
  3. SABRIL [Suspect]
     Active Substance: VIGABATRIN
     Indication: Cerebral palsy
     Route: 065
  4. CLOBAZAM [Suspect]
     Active Substance: CLOBAZAM
     Indication: Infantile spasms
     Dosage: 1 DF, BID
     Route: 048
     Dates: start: 2018
  5. CLOBAZAM [Suspect]
     Active Substance: CLOBAZAM
     Indication: Arnold-Chiari malformation
     Route: 048
  6. CLOBAZAM [Suspect]
     Active Substance: CLOBAZAM
     Indication: Cerebral palsy
     Route: 048
  7. LAMOTRIGINE [Suspect]
     Active Substance: LAMOTRIGINE
     Indication: Infantile spasms
     Dosage: 1 DF, BID
     Route: 048
     Dates: start: 2018
  8. LAMOTRIGINE [Suspect]
     Active Substance: LAMOTRIGINE
     Indication: Arnold-Chiari malformation
     Route: 048
  9. LAMOTRIGINE [Suspect]
     Active Substance: LAMOTRIGINE
     Indication: Cerebral palsy
     Route: 048
  10. CANNABIDIOL [Concomitant]
     Active Substance: CANNABIDIOL
     Indication: Cerebral palsy
     Dosage: 35 GTT DROPS, BID
     Route: 065
     Dates: start: 2021
  11. CANNABIDIOL [Concomitant]
     Active Substance: CANNABIDIOL
     Indication: Infantile spasms
  12. CANNABIDIOL [Concomitant]
     Active Substance: CANNABIDIOL
     Indication: Arnold-Chiari malformation

REACTIONS (4)
  - Femur fracture [Unknown]
  - Seizure [Unknown]
  - Insomnia [Unknown]
  - Product use in unapproved indication [Unknown]

NARRATIVE: CASE EVENT DATE: 20180101
